FAERS Safety Report 6399777-8 (Version None)
Quarter: 2009Q4

REPORT INFORMATION
  Report Type: 
  Country: None (occurrence: None)
  Receive Date: 20091014
  Receipt Date: 20091002
  Transmission Date: 20100525
  Serious: Yes (Other)
  Sender: FDA-Public Use
  Company Number: US-ELI_LILLY_AND_COMPANY-US200910001103

PATIENT
  Sex: Male

DRUGS (2)
  1. STRATTERA [Suspect]
     Indication: ATTENTION DEFICIT/HYPERACTIVITY DISORDER
     Dosage: 20 MG, DAILY (1/D)
     Route: 065
     Dates: start: 20060101
  2. STRATTERA [Suspect]
     Dosage: 40 MG, 2/D
     Route: 065
     Dates: end: 20080101

REACTIONS (5)
  - ANXIETY [None]
  - CHEST DISCOMFORT [None]
  - DYSPNOEA [None]
  - TACHYCARDIA [None]
  - VENTRICULAR HYPERTROPHY [None]
